FAERS Safety Report 6742510-8 (Version None)
Quarter: 2010Q2

REPORT INFORMATION
  Report Type: 
  Country: None (occurrence: None)
  Receive Date: 20100524
  Receipt Date: 20100514
  Transmission Date: 20101027
  Serious: Yes (Other)
  Sender: FDA-Public Use
  Company Number: 1000013955

PATIENT
  Sex: Male

DRUGS (1)
  1. MEMANTINE [Suspect]
     Dosage: (200 MG, ONCE), ORAL; (40 GTT), ORAL
     Route: 048

REACTIONS (3)
  - ACCIDENTAL OVERDOSE [None]
  - DRUG DISPENSING ERROR [None]
  - SOMNOLENCE [None]
